FAERS Safety Report 7319230-4 (Version None)
Quarter: 2011Q1

REPORT INFORMATION
  Report Type: 
  Country: None (occurrence: None)
  Receive Date: 20110228
  Receipt Date: 20110218
  Transmission Date: 20110831
  Serious: Yes (Other)
  Sender: FDA-Public Use
  Company Number: PHHY2011JP03648

PATIENT
  Sex: Male

DRUGS (3)
  1. MIGLITOL [Suspect]
     Indication: DIABETES MELLITUS
     Dosage: 150 MG DAILY
     Route: 048
  2. LAMISIL [Suspect]
     Dosage: UNK
     Route: 048
     Dates: start: 20101029
  3. OLMETEC [Suspect]
     Indication: HYPERTENSION
     Dosage: 10 MG
     Route: 048

REACTIONS (2)
  - ACCIDENT [None]
  - SOMNOLENCE [None]
